FAERS Safety Report 5424014-8 (Version None)
Quarter: 2007Q3

REPORT INFORMATION
  Report Type: 
  Country: None (occurrence: None)
  Receive Date: 20070727
  Receipt Date: 20061005
  Transmission Date: 20080115
  Serious: Yes (Death, Hospitalization)
  Sender: FDA-Public Use
  Company Number: THYM-11094

PATIENT
  Age: 62 Year
  Sex: Male
  Weight: 107 kg

DRUGS (7)
  1. THYMOGLOBULIN [Suspect]
     Indication: LIVER TRANSPLANT
     Dosage: 1.5 MG/KG QOD IV
     Route: 042
     Dates: start: 20051124
  2. SOLU-MEDROL [Concomitant]
  3. MOPRAL [Concomitant]
  4. TAZOCILLINE [Concomitant]
  5. NORADRENALINE [Concomitant]
  6. CYCLOSPORINE [Concomitant]
  7. TACAROLIMUS [Concomitant]

REACTIONS (5)
  - HEPATIC FUNCTION ABNORMAL [None]
  - INTRA-ABDOMINAL HAEMORRHAGE [None]
  - MULTI-ORGAN FAILURE [None]
  - POST PROCEDURAL HAEMORRHAGE [None]
  - RENAL FAILURE ACUTE [None]
